FAERS Safety Report 7395342-4 (Version None)
Quarter: 2011Q2

REPORT INFORMATION
  Report Type: 
  Country: None (occurrence: None)
  Receive Date: 20110405
  Receipt Date: 20110401
  Transmission Date: 20111010
  Serious: Yes (Other)
  Sender: FDA-Public Use
  Company Number: DK-PFIZER INC-2011047611

PATIENT
  Age: 31 Year
  Sex: Female
  Weight: 71 kg

DRUGS (3)
  1. ZOLOFT [Suspect]
     Indication: ANXIETY
     Dosage: 175 MG, DAILY
     Dates: start: 20090311
  2. ZOLOFT [Suspect]
     Dosage: 150 MG, DAILY
  3. ZOLOFT [Suspect]
     Dosage: 125 MG, DAILY

REACTIONS (5)
  - BLOOD CHOLESTEROL INCREASED [None]
  - PALPITATIONS [None]
  - DYSPNOEA [None]
  - HEART RATE INCREASED [None]
  - HEART RATE ABNORMAL [None]
